FAERS Safety Report 12740278 (Version 1)
Quarter: 2016Q3

REPORT INFORMATION
  Report Type: Spontaneous
  Country: PL (occurrence: PL)
  Receive Date: 20160913
  Receipt Date: 20160913
  Transmission Date: 20161109
  Serious: Yes (Hospitalization)
  Sender: FDA-Public Use
  Company Number: PHHY2016PL123424

PATIENT
  Age: 8 Year
  Sex: Male
  Weight: 28.5 kg

DRUGS (1)
  1. KLIMICIN [Suspect]
     Active Substance: CLINDAMYCIN PHOSPHATE
     Indication: PERITONSILLAR ABSCESS
     Dosage: 300 MG, TID
     Route: 042
     Dates: start: 20160119, end: 20160125

REACTIONS (3)
  - Erythema [Recovering/Resolving]
  - Oedema [Recovering/Resolving]
  - Urticaria [Recovering/Resolving]

NARRATIVE: CASE EVENT DATE: 20160125
